FAERS Safety Report 10695191 (Version 1)
Quarter: 2015Q1

REPORT INFORMATION
  Report Type: Spontaneous
  Country: US (occurrence: None)
  Receive Date: 20150106
  Receipt Date: 20150106
  Transmission Date: 20150721
  Serious: Yes (Disabling)
  Sender: FDA-Public Use
  Company Number: None

PATIENT
  Age: 57 Year
  Sex: Female
  Weight: 63.5 kg

DRUGS (1)
  1. DYSPORT [Suspect]
     Active Substance: ABOBOTULINUMTOXINA
     Indication: SKIN COSMETIC PROCEDURE
     Dosage: 1 DAY SEV INJECETS INTRAMUSCULAR
     Route: 030

REACTIONS (5)
  - Neuropathy peripheral [None]
  - Pain [None]
  - Neurotoxicity [None]
  - Disturbance in attention [None]
  - Product contamination [None]

NARRATIVE: CASE EVENT DATE: 20140626
